FAERS Safety Report 9400199 (Version 1)
Quarter: 2013Q3

REPORT INFORMATION
  Report Type: Spontaneous
  Country: US (occurrence: US)
  Receive Date: 20130715
  Receipt Date: 20130715
  Transmission Date: 20140515
  Serious: Yes (Other)
  Sender: FDA-Public Use
  Company Number: US-BAYER-2013-085388

PATIENT
  Age: 26 Year
  Sex: Female

DRUGS (7)
  1. OCELLA [Suspect]
  2. ASACOL [Concomitant]
  3. DIFLUCAN [Concomitant]
  4. RELPAX [Concomitant]
  5. FERROUS SULFATE [Concomitant]
  6. AZITHROMYCIN [Concomitant]
  7. PERCOCET [Concomitant]

REACTIONS (1)
  - Deep vein thrombosis [Recovering/Resolving]
